FAERS Safety Report 6246850-0 (Version None)
Quarter: 2009Q2

REPORT INFORMATION
  Report Type: 
  Country: None (occurrence: None)
  Receive Date: 20090624
  Receipt Date: 20090624
  Transmission Date: 20091009
  Serious: Yes (Hospitalization)
  Sender: FDA-Public Use
  Company Number: None

PATIENT
  Sex: Female
  Weight: 77 kg

DRUGS (1)
  1. CISPLATIN [Suspect]
     Dosage: 70 MG
     Dates: end: 20090420

REACTIONS (5)
  - DEEP VEIN THROMBOSIS [None]
  - HAEMATOCRIT DECREASED [None]
  - HAEMOGLOBIN DECREASED [None]
  - TUMOUR HAEMORRHAGE [None]
  - VAGINAL HAEMORRHAGE [None]
